FAERS Safety Report 5291172-8 (Version None)
Quarter: 2007Q2

REPORT INFORMATION
  Report Type: 
  Country: None (occurrence: None)
  Receive Date: 20070409
  Receipt Date: 20070407
  Transmission Date: 20071010
  Serious: Yes (Other)
  Sender: FDA-Public Use
  Company Number: US-GENENTECH-227330

PATIENT
  Sex: Female

DRUGS (6)
  1. SOMATROPIN [Suspect]
     Indication: CARDIOVASCULAR DISORDER
     Dosage: 0.5 MG, 7/WEEK
     Route: 058
     Dates: start: 20060417
  2. DIGOXIN [Concomitant]
     Indication: DRUG USE FOR UNKNOWN INDICATION
  3. LASIX [Concomitant]
     Indication: DRUG USE FOR UNKNOWN INDICATION
  4. VASOTEC [Concomitant]
     Indication: DRUG USE FOR UNKNOWN INDICATION
  5. ASPIRIN [Concomitant]
     Indication: DRUG USE FOR UNKNOWN INDICATION
  6. PERIACTIN [Concomitant]
     Indication: DRUG USE FOR UNKNOWN INDICATION

REACTIONS (2)
  - PYREXIA [None]
  - SPLENOMEGALY [None]
